FAERS Safety Report 12992714 (Version 2)
Quarter: 2017Q2

REPORT INFORMATION
  Report Type: Spontaneous
  Country: US (occurrence: US)
  Receive Date: 20161202
  Receipt Date: 20170403
  Transmission Date: 20170830
  Serious: No
  Sender: FDA-Public Use
  Company Number: US-JNJFOC-20161118824

PATIENT
  Age: 82 Year
  Sex: Male
  Weight: 65.77 kg

DRUGS (1)
  1. ZYTIGA [Suspect]
     Active Substance: ABIRATERONE ACETATE
     Indication: PROSTATE CANCER
     Route: 048
     Dates: start: 2016

REACTIONS (4)
  - Dysphagia [Not Recovered/Not Resolved]
  - Underdose [Not Recovered/Not Resolved]
  - Foreign body [Unknown]
  - Product size issue [Unknown]

NARRATIVE: CASE EVENT DATE: 20161116
